FAERS Safety Report 14814183 (Version 1)
Quarter: 2018Q2

REPORT INFORMATION
  Report Type: Spontaneous
  Country: US (occurrence: US)
  Receive Date: 20180426
  Receipt Date: 20180426
  Transmission Date: 20180711
  Serious: No
  Sender: FDA-Public Use
  Company Number: US-TEVA-794993ACC

PATIENT
  Sex: Female

DRUGS (1)
  1. HYDROCODONE W/IBUPROFEN [Suspect]
     Active Substance: HYDROCODONE\IBUPROFEN
     Indication: ENDOMETRIOSIS
     Dosage: DOSE STRENGTH: 7.5/200 MG

REACTIONS (2)
  - Drug ineffective [Unknown]
  - Pain [Unknown]
